FAERS Safety Report 8967984 (Version 1)
Quarter: 2012Q4

REPORT INFORMATION
  Report Type: 
  Country: JP (occurrence: JP)
  Receive Date: 20121218
  Receipt Date: 20121218
  Transmission Date: 20130627
  Serious: Yes (Other)
  Sender: FDA-Public Use
  Company Number: JP-UCBSA-073230

PATIENT
  Age: 38 Year
  Sex: Female

DRUGS (4)
  1. E KEPPRA [Suspect]
     Indication: EPILEPSY
     Route: 048
     Dates: start: 20110830, end: 20120319
  2. SODIUM VALPROATE [Concomitant]
     Dosage: UNKNOWN DOSE
     Route: 048
  3. CARBAMAZEPINE [Concomitant]
     Dosage: UNKNOWN DOSE
     Route: 048
  4. PHENOBARBITAL [Concomitant]
     Dosage: UNKNOWN DOSE
     Route: 048

REACTIONS (2)
  - Intentional self-injury [Recovered/Resolved]
  - Agitation [Recovered/Resolved]
